FAERS Safety Report 9696882 (Version 2)
Quarter: 2015Q3

REPORT INFORMATION
  Report Type: Spontaneous
  Country: US (occurrence: US)
  Receive Date: 20131119
  Receipt Date: 20150803
  Transmission Date: 20151125
  Serious: No
  Sender: FDA-Public Use
  Company Number: US-GILEAD-2007-0013979

PATIENT
  Sex: Male

DRUGS (2)
  1. EPOETIN [Concomitant]
     Active Substance: ERYTHROPOIETIN
     Indication: ANAEMIA
  2. LETAIRIS [Suspect]
     Active Substance: AMBRISENTAN
     Indication: PULMONARY ARTERIAL HYPERTENSION

REACTIONS (8)
  - Oropharyngeal pain [Unknown]
  - Fatigue [Unknown]
  - Hot flush [Unknown]
  - Nasal congestion [Unknown]
  - Constipation [Unknown]
  - Dyspnoea [Unknown]
  - Palpitations [Unknown]
  - Headache [Unknown]
